FAERS Safety Report 8854270 (Version 1)
Quarter: 2012Q4

REPORT INFORMATION
  Report Type: 
  Country: SE (occurrence: SE)
  Receive Date: 20121023
  Receipt Date: 20121023
  Transmission Date: 20130627
  Serious: Yes (Hospitalization, Disabling)
  Sender: FDA-Public Use
  Company Number: SE-009507513-1209SWE004401

PATIENT
  Age: 86 Year
  Sex: Female
  Weight: 53 kg

DRUGS (5)
  1. ZOCOR [Suspect]
     Indication: HYPERLIPIDAEMIA
     Dosage: 20 mg, qd
     Route: 048
     Dates: start: 20120528, end: 20120909
  2. TROMBYL [Concomitant]
     Indication: MYOCARDIAL ISCHAEMIA
  3. METOPROLOL [Concomitant]
     Indication: MYOCARDIAL ISCHAEMIA
  4. LOSARTAN POTASSIUM [Concomitant]
     Indication: MYOCARDIAL ISCHAEMIA
     Route: 048
  5. LEVAXIN [Concomitant]
     Indication: HYPOTHYROIDISM

REACTIONS (2)
  - Pain in extremity [Recovering/Resolving]
  - Muscular weakness [Recovering/Resolving]
